FAERS Safety Report 4508015-X (Version None)
Quarter: 2004Q4

REPORT INFORMATION
  Report Type: 
  Country: None (occurrence: None)
  Receive Date: 20041122
  Receipt Date: 20041122
  Transmission Date: 20050328
  Serious: Yes (Life-Threatening, Disabling)
  Sender: FDA-Public Use
  Company Number: None

PATIENT
  Sex: Female
  Weight: 58.9676 kg

DRUGS (3)
  1. REGLAN [Suspect]
     Indication: GASTRIC HYPOMOTILITY
     Dosage: 4XDAY
     Dates: start: 20040310, end: 20040610
  2. ZOLOFT [Concomitant]
  3. REMERON [Concomitant]

REACTIONS (3)
  - DEPRESSION [None]
  - IMPAIRED WORK ABILITY [None]
  - SUICIDAL IDEATION [None]
